FAERS Safety Report 6156759-9 (Version None)
Quarter: 2009Q2

REPORT INFORMATION
  Report Type: 
  Country: None (occurrence: None)
  Receive Date: 20090416
  Receipt Date: 20090408
  Transmission Date: 20091009
  Serious: Yes (Hospitalization)
  Sender: FDA-Public Use
  Company Number: PL-TYCO HEALTHCARE/MALLINCKRODT-T200900865

PATIENT

DRUGS (9)
  1. OPTIRAY 300 [Suspect]
     Indication: ARTERIOGRAM CORONARY
     Dosage: UNK
     Route: 013
     Dates: start: 20090318, end: 20090318
  2. ACARD [Concomitant]
  3. PLAVIX [Concomitant]
  4. TRITACE [Concomitant]
  5. SORTIS                             /01326101/ [Concomitant]
  6. CAPTOPRIL [Concomitant]
  7. CLEXANE [Concomitant]
  8. POLPRAZOL [Concomitant]
  9. VIVACOR                            /00984501/ [Concomitant]

REACTIONS (2)
  - HYPOTENSION [None]
  - VISUAL IMPAIRMENT [None]
